FAERS Safety Report 11779845 (Version 1)
Quarter: 2015Q4

REPORT INFORMATION
  Report Type: Report from Study
  Country: US (occurrence: US)
  Receive Date: 20151125
  Receipt Date: 20151125
  Transmission Date: 20160304
  Serious: No
  Sender: FDA-Public Use
  Company Number: PHEH2015US024037

PATIENT
  Age: 5 Year

DRUGS (1)
  1. ILARIS [Suspect]
     Active Substance: CANAKINUMAB
     Dosage: 75 MG, UNK
     Route: 060

REACTIONS (1)
  - Medication error [Unknown]

NARRATIVE: CASE EVENT DATE: 20151107
